FAERS Safety Report 7597818-3 (Version None)
Quarter: 2011Q3

REPORT INFORMATION
  Report Type: 
  Country: None (occurrence: None)
  Receive Date: 20110708
  Receipt Date: 20110630
  Transmission Date: 20111222
  Serious: Yes (Hospitalization)
  Sender: FDA-Public Use
  Company Number: NL-SANOFI-AVENTIS-2011SA041785

PATIENT
  Age: 65 Year
  Sex: Female

DRUGS (6)
  1. OXALIPLATIN [Suspect]
     Indication: COLORECTAL CANCER
     Dates: start: 20100106, end: 20100106
  2. FLUOROURACIL [Suspect]
     Indication: COLORECTAL CANCER
     Route: 042
     Dates: start: 20100106, end: 20100106
  3. FLUOROURACIL [Suspect]
     Route: 042
     Dates: start: 20100106, end: 20100106
  4. LEUCOVORIN CALCIUM [Suspect]
     Indication: COLORECTAL CANCER
     Route: 042
     Dates: start: 20110106, end: 20110106
  5. INVESTIGATIONAL DRUG [Suspect]
     Indication: COLORECTAL CANCER
     Route: 048
     Dates: start: 20091202, end: 20100224
  6. ACETAMINOPHEN [Concomitant]
     Dates: start: 20100131

REACTIONS (1)
  - GRAND MAL CONVULSION [None]
